FAERS Safety Report 7048465-3 (Version None)
Quarter: 2010Q4

REPORT INFORMATION
  Report Type: 
  Country: None (occurrence: None)
  Receive Date: 20101015
  Receipt Date: 20101015
  Transmission Date: 20110411
  Serious: No
  Sender: FDA-Public Use
  Company Number: None

PATIENT
  Sex: Female

DRUGS (1)
  1. NEULASTA [Suspect]
     Dosage: 6 MG/0.6ML SC INJECT 6MG (0.6ML) SUBCUTANEOUSLY FOR 1 DAY EVERY 21 DAYS
     Route: 058

REACTIONS (1)
  - RASH [None]
